FAERS Safety Report 7345153-0 (Version None)
Quarter: 2011Q1

REPORT INFORMATION
  Report Type: 
  Country: None (occurrence: None)
  Receive Date: 20110310
  Receipt Date: 20110223
  Transmission Date: 20110831
  Serious: Yes (Hospitalization, Other)
  Sender: FDA-Public Use
  Company Number: US-BAYER-201034751NA

PATIENT
  Sex: Female

DRUGS (3)
  1. YAZ [Suspect]
     Indication: PRODUCT USED FOR UNKNOWN INDICATION
  2. YASMIN [Suspect]
     Indication: PRODUCT USED FOR UNKNOWN INDICATION
  3. OCELLA [Suspect]

REACTIONS (9)
  - HEADACHE [None]
  - HEMIPLEGIA [None]
  - HEMIPARESIS [None]
  - HAEMORRHAGE INTRACRANIAL [None]
  - MITRAL VALVE DISEASE [None]
  - CEREBROVASCULAR ACCIDENT [None]
  - CAROTID ARTERY OCCLUSION [None]
  - CAROTID ARTERY STENOSIS [None]
  - TRICUSPID VALVE DISEASE [None]
